FAERS Safety Report 21410844 (Version 1)
Quarter: 2022Q4

REPORT INFORMATION
  Report Type: Spontaneous
  Country: US (occurrence: None)
  Receive Date: 20221004
  Receipt Date: 20221004
  Transmission Date: 20230113
  Serious: No
  Sender: FDA-Public Use
  Company Number: None

PATIENT
  Age: 12 Year
  Sex: Female

DRUGS (3)
  1. STELARA [Suspect]
     Active Substance: USTEKINUMAB
     Indication: Gastrointestinal inflammation
     Dosage: OTHER FREQUENCY : EVERY 28 DAYS;?
     Route: 058
     Dates: start: 20211020
  2. STELARA [Suspect]
     Active Substance: USTEKINUMAB
     Indication: Colitis
  3. STELARA [Suspect]
     Active Substance: USTEKINUMAB
     Indication: Crohn^s disease

REACTIONS (4)
  - Liquid product physical issue [None]
  - Product dose omission issue [None]
  - Fatigue [None]
  - Syringe issue [None]

NARRATIVE: CASE EVENT DATE: 20221002
